FAERS Safety Report 20568723 (Version 1)
Quarter: 2022Q1

REPORT INFORMATION
  Report Type: Report from Study
  Country: AU (occurrence: AU)
  Receive Date: 20220308
  Receipt Date: 20220308
  Transmission Date: 20220423
  Serious: Yes (Other)
  Sender: FDA-Public Use
  Company Number: AU-MYLANLABS-2022M1018111

PATIENT
  Age: 6 Year
  Sex: Male

DRUGS (2)
  1. CEPHALEXIN [Suspect]
     Active Substance: CEPHALEXIN
     Indication: Chronic recurrent multifocal osteomyelitis
     Dosage: 500 MILLIGRAM, QID ADMINISTERED FOR 8 WEEKS
     Route: 048
  2. SULFAMETHOXAZOLE\TRIMETHOPRIM [Suspect]
     Active Substance: SULFAMETHOXAZOLE\TRIMETHOPRIM
     Indication: Chronic recurrent multifocal osteomyelitis
     Dosage: 8 MILLIGRAM/KILOGRAM, BID, ADMINISTERED FOR 4 WEEKS
     Route: 048

REACTIONS (1)
  - Drug ineffective [Unknown]
